FAERS Safety Report 14349140 (Version 1)
Quarter: 2018Q1

REPORT INFORMATION
  Report Type: Spontaneous
  Country: US (occurrence: US)
  Receive Date: 20180104
  Receipt Date: 20180104
  Transmission Date: 20180509
  Serious: No
  Sender: FDA-Public Use
  Company Number: US-TEVA-757225ACC

PATIENT
  Sex: Male

DRUGS (1)
  1. DEXEDRINE [Suspect]
     Active Substance: DEXTROAMPHETAMINE SULFATE
     Dosage: EXTENDED RELEASE CAPSULE

REACTIONS (1)
  - Malaise [Unknown]
